FAERS Safety Report 8548329-X (Version None)
Quarter: 2012Q3

REPORT INFORMATION
  Report Type: 
  Country: None (occurrence: None)
  Receive Date: 20120730
  Receipt Date: 20120720
  Transmission Date: 20120928
  Serious: Yes (Hospitalization)
  Sender: FDA-Public Use
  Company Number: US-JNJFOC-20120509671

PATIENT
  Sex: Male
  Weight: 62.6 kg

DRUGS (6)
  1. NEXIUM [Concomitant]
     Indication: GASTROOESOPHAGEAL REFLUX DISEASE
     Route: 065
  2. LUPRON [Concomitant]
     Route: 048
  3. PREDNISONE [Concomitant]
     Indication: PRODUCT USED FOR UNKNOWN INDICATION
     Route: 065
  4. METHADONE HCL [Concomitant]
     Indication: PAIN
     Route: 048
  5. LOVENOX [Concomitant]
     Indication: THROMBOSIS
     Route: 065
  6. ZYTIGA [Suspect]
     Indication: PROSTATE CANCER
     Route: 048
     Dates: start: 20120401

REACTIONS (9)
  - ACTIVITIES OF DAILY LIVING IMPAIRED [None]
  - ADVERSE EVENT [None]
  - OEDEMA PERIPHERAL [None]
  - HEADACHE [None]
  - DECREASED APPETITE [None]
  - CONFUSIONAL STATE [None]
  - DYSPNOEA [None]
  - WEIGHT DECREASED [None]
  - PENILE OEDEMA [None]
